FAERS Safety Report 14920241 (Version 1)
Quarter: 2018Q2

REPORT INFORMATION
  Report Type: Spontaneous
  Country: US (occurrence: US)
  Receive Date: 20180502
  Receipt Date: 20180502
  Transmission Date: 20180711
  Serious: Yes (Disabling)
  Sender: FDA-Public Use
  Company Number: None

PATIENT
  Age: 63 Year
  Sex: Female
  Weight: 77.11 kg

DRUGS (1)
  1. FLUTICASONE PROPIONATE 50MCG PER SPRAY [Suspect]
     Active Substance: FLUTICASONE PROPIONATE
     Indication: SEASONAL ALLERGY
     Dosage: QUANTITY:2 SPRAYS;?
     Route: 006
     Dates: start: 20180316, end: 20180331

REACTIONS (3)
  - Epistaxis [None]
  - Adenoidal hypertrophy [None]
  - Swelling face [None]

NARRATIVE: CASE EVENT DATE: 201803
